FAERS Safety Report 19480208 (Version 1)
Quarter: 2021Q2

REPORT INFORMATION
  Report Type: Spontaneous
  Country: US (occurrence: US)
  Receive Date: 20210630
  Receipt Date: 20210630
  Transmission Date: 20210717
  Serious: No
  Sender: FDA-Public Use
  Company Number: US-FOUNDATIONCONSUMERHC-2021-US-002271

PATIENT
  Age: 22 Year
  Sex: Female
  Weight: 86.18 kg

DRUGS (2)
  1. UNSPECIFIED INHALER [Concomitant]
     Active Substance: UNSPECIFIED INGREDIENT
  2. PLAN B ONE?STEP [Suspect]
     Active Substance: LEVONORGESTREL
     Indication: POST COITAL CONTRACEPTION
     Dosage: 1.5 MG X  3 DOSES
     Route: 048
     Dates: start: 2018, end: 20210129

REACTIONS (4)
  - Vaginal haemorrhage [Not Recovered/Not Resolved]
  - Product use in unapproved indication [Recovered/Resolved]
  - Dysmenorrhoea [Not Recovered/Not Resolved]
  - Intentional product misuse [Recovered/Resolved]

NARRATIVE: CASE EVENT DATE: 2018
